FAERS Safety Report 7736373 (Version 4)
Quarter: 2013Q4

REPORT INFORMATION
  Report Type: Report from Study
  Country: US (occurrence: US)
  Receive Date: 20101223
  Receipt Date: 20131113
  Transmission Date: 20140711
  Serious: Yes (Hospitalization)
  Sender: FDA-Public Use
  Company Number: US-US-EMD SERONO, INC.-7029021

PATIENT
  Age: 38 Year
  Sex: Male
  Weight: 78 kg

DRUGS (3)
  1. REBIF [Suspect]
     Indication: MULTIPLE SCLEROSIS
     Route: 058
     Dates: start: 20031219, end: 201012
  2. REBIF [Suspect]
     Route: 058
     Dates: start: 201012, end: 2012
  3. ADVIL [Concomitant]
     Indication: PAIN

REACTIONS (4)
  - Meningitis bacterial [Recovered/Resolved]
  - Staphylococcal infection [Recovered/Resolved]
  - Impaired healing [Recovered/Resolved]
  - Injection site infection [Recovered/Resolved]
